FAERS Safety Report 16642324 (Version 1)
Quarter: 2019Q3

REPORT INFORMATION
  Report Type: Spontaneous
  Country: US (occurrence: US)
  Receive Date: 20190728
  Receipt Date: 20190728
  Transmission Date: 20191004
  Serious: Yes (Life-Threatening, Hospitalization, Disabling, Other)
  Sender: FDA-Public Use
  Company Number: None

PATIENT
  Age: 39 Year
  Sex: Female
  Weight: 57.6 kg

DRUGS (2)
  1. HALIPERIDOL DECANOATE [Suspect]
     Active Substance: HALOPERIDOL DECANOATE
     Indication: SCHIZOAFFECTIVE DISORDER
     Dosage: ?          QUANTITY:1 INJECTION(S);OTHER FREQUENCY:2 WEEKS TO 1 MONTH;?
     Route: 030
  2. INVEGA SUSTENNA [Suspect]
     Active Substance: PALIPERIDONE PALMITATE
     Indication: SCHIZOAFFECTIVE DISORDER
     Dosage: ?          QUANTITY:1 INJECTION(S);OTHER FREQUENCY:MONTHLY;?
     Route: 030
     Dates: start: 20190531

REACTIONS (22)
  - Drug ineffective [None]
  - Agitation [None]
  - Back pain [None]
  - Panic attack [None]
  - Blood prolactin increased [None]
  - Feeling abnormal [None]
  - Amenorrhoea [None]
  - Metrorrhagia [None]
  - Hypotension [None]
  - Musculoskeletal stiffness [None]
  - Lactation disorder [None]
  - Anxiety [None]
  - Vertigo [None]
  - Photophobia [None]
  - Dyskinesia [None]
  - Blepharospasm [None]
  - Sedation [None]
  - Restlessness [None]
  - Myalgia [None]
  - Loss of consciousness [None]
  - Tongue movement disturbance [None]
  - Cognitive disorder [None]
